FAERS Safety Report 24527592 (Version 1)
Quarter: 2024Q4

REPORT INFORMATION
  Report Type: Spontaneous
  Country: SK (occurrence: SK)
  Receive Date: 20241021
  Receipt Date: 20241021
  Transmission Date: 20250115
  Serious: Yes (Other)
  Sender: TAKEDA
  Company Number: SK-TAKEDA-2024TUS102110

PATIENT
  Age: 65 Year
  Sex: Female

DRUGS (1)
  1. ENTYVIO [Suspect]
     Active Substance: VEDOLIZUMAB
     Indication: Crohn^s disease
     Dosage: UNK
     Route: 065
     Dates: start: 2021, end: 202311

REACTIONS (2)
  - Brain abscess [Recovering/Resolving]
  - Full blood count abnormal [Unknown]
